FAERS Safety Report 8152552 (Version 3)
Quarter: 2013Q1

REPORT INFORMATION
  Report Type: Spontaneous
  Country: US (occurrence: US)
  Receive Date: 20110922
  Receipt Date: 20130215
  Transmission Date: 20140127
  Serious: Yes (Other)
  Sender: FDA-Public Use
  Company Number: US-ASTRAZENECA-2011SE12612

PATIENT
  Sex: Male

DRUGS (13)
  1. SEROQUEL [Suspect]
     Route: 048
     Dates: start: 20070417
  2. GEODON [Concomitant]
     Dosage: 40 TO 80 MG
     Dates: start: 20060206
  3. TRIHEXYPHENIDYL [Concomitant]
     Dates: start: 20060206
  4. DEPAKOTE ER [Concomitant]
     Dates: start: 20060307
  5. HALOPERIDOL [Concomitant]
     Dates: start: 20060227
  6. EFFEXOR XR [Concomitant]
     Dosage: 37.5 TO 150 MG
     Dates: start: 20070417
  7. TRAZODONE [Concomitant]
     Dates: start: 20070417
  8. ASPIRIN EC [Concomitant]
     Dates: start: 20110124
  9. FENOFLBRATE [Concomitant]
     Dates: start: 20110428
  10. GEMFIBROZIL [Concomitant]
     Dates: start: 20110124
  11. HYDROCHLOROTHIAZIDE [Concomitant]
     Dates: start: 20110124
  12. LISINOPRIL [Concomitant]
     Dates: start: 20110105
  13. PRAVASTATIN SODIUM [Concomitant]
     Dates: start: 20110105

REACTIONS (3)
  - Pancreatitis [Unknown]
  - Diabetic coma [Unknown]
  - Type 2 diabetes mellitus [Unknown]
